FAERS Safety Report 21629408 (Version 1)
Quarter: 2022Q4

REPORT INFORMATION
  Report Type: Spontaneous
  Country: DE (occurrence: DE)
  Receive Date: 20221122
  Receipt Date: 20221122
  Transmission Date: 20230112
  Serious: Yes (Other)
  Sender: FDA-Public Use
  Company Number: DE-002147023-NVSC2022DE261104

PATIENT
  Age: 39 Year
  Sex: Male

DRUGS (1)
  1. DEXAMETHASONE [Suspect]
     Active Substance: DEXAMETHASONE
     Indication: Immune thrombocytopenia
     Dosage: UNK
     Route: 065

REACTIONS (3)
  - Cushing^s syndrome [Unknown]
  - Cytomegalovirus infection reactivation [Unknown]
  - Product use in unapproved indication [Unknown]
